FAERS Safety Report 11786644 (Version 1)
Quarter: 2015Q4

REPORT INFORMATION
  Report Type: Spontaneous
  Country: US (occurrence: US)
  Receive Date: 20151130
  Receipt Date: 20151130
  Transmission Date: 20160305
  Serious: Yes (Hospitalization)
  Sender: FDA-Public Use
  Company Number: US-PFIZER INC-2015408644

PATIENT
  Age: 41 Year
  Sex: Female

DRUGS (1)
  1. XANAX [Suspect]
     Active Substance: ALPRAZOLAM
     Indication: HYPERTHYROIDISM
     Dosage: UNK
     Dates: start: 2005

REACTIONS (4)
  - Muscle spasms [Unknown]
  - Back disorder [Unknown]
  - Panic disorder [Unknown]
  - Anxiety disorder [Unknown]
